FAERS Safety Report 25554201 (Version 1)
Quarter: 2025Q3

REPORT INFORMATION
  Report Type: Spontaneous
  Country: EU (occurrence: EU)
  Receive Date: 20250715
  Receipt Date: 20250715
  Transmission Date: 20251021
  Serious: Yes (Other)
  Sender: TEVA
  Company Number: None

PATIENT
  Age: 62 Year
  Sex: Male
  Weight: 102 kg

DRUGS (1)
  1. SILDENAFIL [Suspect]
     Active Substance: SILDENAFIL
     Indication: Erectile dysfunction
     Route: 065
     Dates: start: 20250320

REACTIONS (5)
  - Syncope [Recovered/Resolved]
  - Vomiting [Recovered/Resolved]
  - Fatigue [Recovering/Resolving]
  - Gastrooesophageal reflux disease [Recovered/Resolved]
  - Fall [Recovered/Resolved]

NARRATIVE: CASE EVENT DATE: 20250320
